FAERS Safety Report 4994613-6 (Version None)
Quarter: 2006Q2

REPORT INFORMATION
  Report Type: 
  Country: None (occurrence: None)
  Receive Date: 20060505
  Receipt Date: 20050930
  Transmission Date: 20061013
  Serious: Yes (Hospitalization)
  Sender: FDA-Public Use
  Company Number: US-MERCK-0510USA02181

PATIENT
  Age: 48 Year
  Sex: Male
  Weight: 77 kg

DRUGS (12)
  1. VIOXX [Suspect]
     Indication: ARTHRITIS
     Route: 048
     Dates: start: 20000419, end: 20020208
  2. VIOXX [Suspect]
     Route: 048
     Dates: start: 20030301, end: 20030401
  3. VIOXX [Suspect]
     Route: 048
     Dates: start: 20040327, end: 20040413
  4. VIOXX [Suspect]
     Route: 048
     Dates: start: 20000419, end: 20020208
  5. VIOXX [Suspect]
     Route: 048
     Dates: start: 20000419, end: 20020208
  6. VIOXX [Suspect]
     Route: 048
     Dates: start: 20030301, end: 20030401
  7. VIOXX [Suspect]
     Route: 048
     Dates: start: 20030301, end: 20030401
  8. VIOXX [Suspect]
     Route: 048
     Dates: start: 20040327, end: 20040413
  9. VIOXX [Suspect]
     Route: 048
     Dates: start: 20040327, end: 20040413
  10. ASPIRIN [Concomitant]
     Route: 065
  11. TYLENOL (CAPLET) [Concomitant]
     Route: 065
  12. IBUPROFEN [Concomitant]
     Route: 065

REACTIONS (17)
  - ABDOMINAL DISCOMFORT [None]
  - ACUTE MYOCARDIAL INFARCTION [None]
  - ARTERIOSPASM CORONARY [None]
  - CARDIAC DISORDER [None]
  - CHEST PAIN [None]
  - CORONARY ARTERY OCCLUSION [None]
  - DYSPNOEA [None]
  - FATIGUE [None]
  - FLANK PAIN [None]
  - GASTROINTESTINAL HAEMORRHAGE [None]
  - HYPERTENSION [None]
  - INJURY [None]
  - MALLORY-WEISS SYNDROME [None]
  - MUSCLE SPASMS [None]
  - OEDEMA PERIPHERAL [None]
  - PAIN IN EXTREMITY [None]
  - SINUS BRADYCARDIA [None]
